FAERS Safety Report 5744842-9 (Version None)
Quarter: 2008Q2

REPORT INFORMATION
  Report Type: 
  Country: None (occurrence: None)
  Receive Date: 20080520
  Receipt Date: 20080513
  Transmission Date: 20081010
  Serious: Yes (Disabling)
  Sender: FDA-Public Use
  Company Number: GB-PFIZER INC-2008042087

PATIENT
  Age: 10 Year
  Sex: Female

DRUGS (2)
  1. PREDNISOLONE [Suspect]
     Indication: BONE MARROW TRANSPLANT
     Dosage: TEXT:4 MG/KG
  2. CYCLOSPORINE [Suspect]
     Indication: BONE MARROW TRANSPLANT
     Dosage: TEXT:0.3 MG/KG

REACTIONS (10)
  - ALOPECIA [None]
  - CHRONIC GRAFT VERSUS HOST DISEASE [None]
  - EXTREMITY CONTRACTURE [None]
  - GAIT DISTURBANCE [None]
  - JOINT CONTRACTURE [None]
  - LICHENIFICATION [None]
  - SCLERODERMA [None]
  - SKIN HYPERPIGMENTATION [None]
  - SKIN HYPOPIGMENTATION [None]
  - SKIN LESION [None]
